FAERS Safety Report 7074748-7 (Version None)
Quarter: 2010Q4

REPORT INFORMATION
  Report Type: 
  Country: None (occurrence: None)
  Receive Date: 20101029
  Receipt Date: 20101026
  Transmission Date: 20110411
  Serious: Yes (Other)
  Sender: FDA-Public Use
  Company Number: FR-RB-017350-10

PATIENT
  Sex: Male
  Weight: 68 kg

DRUGS (1)
  1. SUBUTEX TABLETS [Suspect]
     Indication: DRUG DEPENDENCE
     Route: 060
     Dates: start: 20101019

REACTIONS (2)
  - BURNING SENSATION [None]
  - INTENTIONAL DRUG MISUSE [None]
